FAERS Safety Report 9887412 (Version 1)
Quarter: 2014Q1

REPORT INFORMATION
  Report Type: Report from Study
  Country: CA (occurrence: CA)
  Receive Date: 20140211
  Receipt Date: 20140211
  Transmission Date: 20141002
  Serious: Yes (Other)
  Sender: FDA-Public Use
  Company Number: CA-JNJFOC-20140202665

PATIENT
  Age: 22 Year
  Sex: Male
  Weight: 94 kg

DRUGS (5)
  1. REMICADE [Suspect]
     Indication: CROHN^S DISEASE
     Dosage: INFUSION NUMBER 13
     Route: 042
     Dates: start: 20140203
  2. REMICADE [Suspect]
     Indication: CROHN^S DISEASE
     Route: 042
     Dates: start: 20120604
  3. TYLENOL [Concomitant]
     Indication: PREMEDICATION
     Route: 065
  4. SOLUCORTEF [Concomitant]
     Indication: PREMEDICATION
     Route: 042
  5. AERIUS [Concomitant]
     Indication: PREMEDICATION
     Route: 048

REACTIONS (5)
  - Oxygen saturation decreased [Recovered/Resolved]
  - Infusion related reaction [Recovered/Resolved]
  - Chest discomfort [Recovered/Resolved]
  - Cough [Recovered/Resolved]
  - Flushing [Recovered/Resolved]
